FAERS Safety Report 23314451 (Version 1)
Quarter: 2023Q4

REPORT INFORMATION
  Report Type: Report from Study
  Country: US (occurrence: US)
  Receive Date: 20231219
  Receipt Date: 20231219
  Transmission Date: 20240109
  Serious: Yes (Hospitalization, Other)
  Sender: FDA-Public Use
  Company Number: US-UCBSA-2023058828

PATIENT
  Sex: Male

DRUGS (1)
  1. LACOSAMIDE [Suspect]
     Active Substance: LACOSAMIDE
     Indication: Seizure
     Dosage: 50 MILLIGRAM, 2X/DAY (BID)

REACTIONS (5)
  - Diverticulitis [Unknown]
  - Central venous catheterisation [Unknown]
  - Abdominal cavity drainage [Unknown]
  - Bedridden [Unknown]
  - Insurance issue [Unknown]
